FAERS Safety Report 8093846-2 (Version None)
Quarter: 2012Q1

REPORT INFORMATION
  Report Type: 
  Country: None (occurrence: None)
  Receive Date: 20120129
  Receipt Date: 20110909
  Transmission Date: 20120608
  Serious: No
  Sender: FDA-Public Use
  Company Number: US-ABBOTT-11P-163-0854338-00

PATIENT
  Sex: Male
  Weight: 83.99 kg

DRUGS (6)
  1. BROMELAIN [Concomitant]
     Indication: ANKYLOSING SPONDYLITIS
  2. HUMIRA [Suspect]
  3. GLUCOSAMINE [Concomitant]
     Indication: ANKYLOSING SPONDYLITIS
  4. FLAX OIL [Concomitant]
     Indication: SUPPLEMENTATION THERAPY
  5. HUMIRA [Suspect]
     Indication: ANKYLOSING SPONDYLITIS
     Dates: start: 20080801
  6. METHOTREXATE [Concomitant]
     Indication: ANKYLOSING SPONDYLITIS

REACTIONS (3)
  - FEELING ABNORMAL [None]
  - JOINT STIFFNESS [None]
  - DRUG INEFFECTIVE [None]
